FAERS Safety Report 8604169-4 (Version None)
Quarter: 2012Q3

REPORT INFORMATION
  Report Type: 
  Country: None (occurrence: None)
  Receive Date: 20120806
  Receipt Date: 20120723
  Transmission Date: 20120928
  Serious: Yes (Disabling)
  Sender: FDA-Public Use
  Company Number: 2012MA009377

PATIENT
  Age: 59 Year
  Sex: Male

DRUGS (3)
  1. CITALOPRAM HYDROBROMIDE [Suspect]
     Dosage: TAKEN FOR A LONG TIME, LATTERLY IN HIGH DOSES
  2. OMEPRAZOLE [Suspect]
  3. LORAZEPAM [Suspect]
     Dosage: TAKEN FOR A LONG TIME, LATTERLY IN HIGH DOSE

REACTIONS (1)
  - HOMICIDE [None]
